FAERS Safety Report 21576176 (Version 2)
Quarter: 2022Q4

REPORT INFORMATION
  Report Type: Spontaneous
  Country: US (occurrence: US)
  Receive Date: 20221110
  Receipt Date: 20221116
  Transmission Date: 20230112
  Serious: Yes (Hospitalization, Other)
  Sender: FDA-Public Use
  Company Number: US-PFIZER INC-PV202200099208

PATIENT
  Age: 23 Year
  Sex: Female

DRUGS (1)
  1. FENTANYL CITRATE [Suspect]
     Active Substance: FENTANYL CITRATE
     Dosage: UNK

REACTIONS (4)
  - Accidental overdose [Unknown]
  - Paraesthesia [Recovering/Resolving]
  - Balance disorder [Recovered/Resolved]
  - Asthenia [Recovered/Resolved]
